FAERS Safety Report 7055972-6 (Version None)
Quarter: 2010Q4

REPORT INFORMATION
  Report Type: 
  Country: None (occurrence: None)
  Receive Date: 20101021
  Receipt Date: 20101013
  Transmission Date: 20110411
  Serious: Yes (Other)
  Sender: FDA-Public Use
  Company Number: A0882952A

PATIENT
  Sex: Female

DRUGS (2)
  1. LAMICTAL [Suspect]
     Indication: PRODUCT USED FOR UNKNOWN INDICATION
     Route: 065
  2. NO CONCURRENT MEDICATION [Concomitant]

REACTIONS (13)
  - ALOPECIA [None]
  - AUTOIMMUNE DISORDER [None]
  - CUTANEOUS LUPUS ERYTHEMATOSUS [None]
  - DRUG INTOLERANCE [None]
  - EYE PAIN [None]
  - IRITIS [None]
  - PYREXIA [None]
  - RASH [None]
  - SKIN BURNING SENSATION [None]
  - SKIN EXFOLIATION [None]
  - SKIN LESION [None]
  - STEVENS-JOHNSON SYNDROME [None]
  - VISUAL ACUITY REDUCED [None]
